FAERS Safety Report 10205954 (Version 2)
Quarter: 2014Q2

REPORT INFORMATION
  Report Type: Spontaneous
  Country: US (occurrence: US)
  Receive Date: 20140530
  Receipt Date: 20140530
  Transmission Date: 20141212
  Serious: Yes (Death, Hospitalization)
  Sender: FDA-Public Use
  Company Number: US-BRISTOL-MYERS SQUIBB COMPANY-20658076

PATIENT
  Age: 83 Year
  Sex: Male
  Weight: 79.36 kg

DRUGS (2)
  1. ELIQUIS [Suspect]
     Indication: CEREBROVASCULAR ACCIDENT PROPHYLAXIS
     Route: 048
     Dates: start: 20140115
  2. ASPIRIN [Suspect]

REACTIONS (2)
  - Cerebral haematoma [Fatal]
  - Fall [Unknown]
